FAERS Safety Report 6927190-0 (Version None)
Quarter: 2010Q3

REPORT INFORMATION
  Report Type: 
  Country: None (occurrence: None)
  Receive Date: 20100816
  Receipt Date: 20100803
  Transmission Date: 20110219
  Serious: Yes (Other)
  Sender: FDA-Public Use
  Company Number: FR-ELI_LILLY_AND_COMPANY-FR201008001312

PATIENT
  Age: 52 Year
  Sex: Male

DRUGS (1)
  1. XIGRIS [Suspect]
     Indication: SEPSIS
     Dosage: 24 MCG/KG, /H FOR 96 HOURS
     Route: 042
     Dates: start: 20100729, end: 20100801

REACTIONS (3)
  - PLATELET COUNT DECREASED [None]
  - SEPTIC SHOCK [None]
  - SUBDIAPHRAGMATIC ABSCESS [None]
